FAERS Safety Report 19537935 (Version 1)
Quarter: 2021Q3

REPORT INFORMATION
  Report Type: Spontaneous
  Country: FR (occurrence: FR)
  Receive Date: 20210714
  Receipt Date: 20210714
  Transmission Date: 20211014
  Serious: Yes (Hospitalization, Other)
  Sender: FDA-Public Use
  Company Number: FR-ROCHE-2866317

PATIENT
  Age: 67 Year
  Sex: Male
  Weight: 71 kg

DRUGS (6)
  1. MODERNA COVID?19 VACCINE [Suspect]
     Active Substance: CX-024414
     Indication: COVID-19 IMMUNISATION
     Route: 030
     Dates: start: 20210208, end: 20210308
  2. ROVALCYTE [Suspect]
     Active Substance: VALGANCICLOVIR HYDROCHLORIDE
     Indication: PROPHYLAXIS AGAINST TRANSPLANT REJECTION
     Route: 048
     Dates: start: 2018
  3. CELLCEPT [Suspect]
     Active Substance: MYCOPHENOLATE MOFETIL\MYCOPHENOLATE MOFETIL HYDROCHLORIDE
     Indication: IMMUNOSUPPRESSION
     Dosage: 750MG X2/J
     Route: 048
     Dates: start: 2015
  4. ADVAGRAF [Suspect]
     Active Substance: TACROLIMUS
     Indication: IMMUNOSUPPRESSION
     Route: 048
     Dates: start: 2015
  5. ACEBUTOLOL HYDROCHLORIDE. [Suspect]
     Active Substance: ACEBUTOLOL HYDROCHLORIDE
     Indication: HYPERTENSION
     Dosage: 300MG IN THE MORNING / 200MG IN THE EVENING
     Route: 048
     Dates: start: 2015
  6. PREVISCAN (FRANCE) [Suspect]
     Active Substance: FLUINDIONE
     Indication: ANTIPHOSPHOLIPID SYNDROME
     Dosage: SELON INR
     Route: 048

REACTIONS (3)
  - Pericarditis [Recovered/Resolved]
  - Oedema [Recovering/Resolving]
  - Dyspnoea [Recovered/Resolved]

NARRATIVE: CASE EVENT DATE: 202102
